FAERS Safety Report 11546325 (Version 2)
Quarter: 2015Q4

REPORT INFORMATION
  Report Type: Spontaneous
  Country: DE (occurrence: None)
  Receive Date: 20150924
  Receipt Date: 20151023
  Transmission Date: 20160304
  Serious: Yes (Life-Threatening, Hospitalization, Other)
  Sender: FDA-Public Use
  Company Number: DE-MDT-ADR-2015-01839

PATIENT
  Age: 28 Year
  Sex: Male

DRUGS (1)
  1. LIORESAL [Suspect]
     Active Substance: BACLOFEN
     Dosage: 820 MCG/DAY

REACTIONS (7)
  - General physical health deterioration [None]
  - No therapeutic response [None]
  - Blood pressure increased [None]
  - Drug withdrawal syndrome [None]
  - Hypertensive crisis [None]
  - Muscle spasticity [None]
  - Tachycardia [None]
